FAERS Safety Report 20204446 (Version 1)
Quarter: 2021Q4

REPORT INFORMATION
  Report Type: Report from Study
  Country: CA (occurrence: CA)
  Receive Date: 20211220
  Receipt Date: 20211220
  Transmission Date: 20220303
  Serious: Yes (Other)
  Sender: FDA-Public Use
  Company Number: CA-JNJFOC-20211233603

PATIENT
  Age: 15 Year
  Sex: Male
  Weight: 65 kg

DRUGS (2)
  1. REMICADE [Suspect]
     Active Substance: INFLIXIMAB
     Indication: Crohn^s disease
     Dosage: NUMBER OF UNITS INVOLVED IN THIS COMPLAINT: 5
     Route: 042
     Dates: start: 20210527
  2. REMICADE [Suspect]
     Active Substance: INFLIXIMAB
     Dosage: INCREASED DOSE 10MG/KG
     Route: 042
     Dates: start: 2021

REACTIONS (1)
  - Crohn^s disease [Unknown]

NARRATIVE: CASE EVENT DATE: 20210101
